FAERS Safety Report 20939432 (Version 1)
Quarter: 2022Q2

REPORT INFORMATION
  Report Type: Spontaneous
  Country: RU (occurrence: RU)
  Receive Date: 20220609
  Receipt Date: 20220609
  Transmission Date: 20220721
  Serious: Yes (Death, Other)
  Sender: FDA-Public Use
  Company Number: RU-BAXTER-2022BAX011699

PATIENT
  Age: 40 Year
  Sex: Female

DRUGS (12)
  1. DOXORUBICIN [Suspect]
     Active Substance: DOXORUBICIN
     Indication: Metastases to liver
     Dosage: UNK (TWO SESSIONS OF CHEMOEMBOLIZATION )
     Route: 065
     Dates: start: 20180620
  2. DOXORUBICIN [Suspect]
     Active Substance: DOXORUBICIN
     Dosage: UNK (TWO SESSIONS OF CHEMOEMBOLIZATION )
     Route: 065
     Dates: start: 20180720
  3. IFOSFAMIDE [Suspect]
     Active Substance: IFOSFAMIDE
     Indication: Metastases to liver
     Dosage: 2.5 G, INTERVAL 21 DAYS
     Route: 065
     Dates: start: 201701, end: 201702
  4. MESNA [Suspect]
     Active Substance: MESNA
     Indication: Metastases to liver
     Dosage: UNK (MESNA 120%, INTERVAL 21 DAYS)
     Route: 065
     Dates: start: 201701, end: 201702
  5. DOXORUBICIN HYDROCHLORIDE [Suspect]
     Active Substance: DOXORUBICIN HYDROCHLORIDE
     Indication: Metastases to liver
     Dosage: 60 MG/M2 (INTERVAL 21 DAYS)
     Route: 065
     Dates: start: 201701, end: 201702
  6. GEMCITABINE [Suspect]
     Active Substance: GEMCITABINE
     Indication: Metastases to lung
     Dosage: 900 MG/M2, ON DAYS 1,8 AS A 90-MINUTE INFUSION, 21-DAY INTERVAL
     Route: 065
     Dates: start: 201703, end: 201803
  7. DOCETAXEL [Suspect]
     Active Substance: DOCETAXEL
     Indication: Metastases to lung
     Dosage: 100 MG/M2, ON DAY 8 OF TREATMENT, 21-DAY INTERVAL)
     Route: 065
  8. PAZOPANIB [Suspect]
     Active Substance: PAZOPANIB
     Indication: Leiomyosarcoma
     Dosage: 800 MG
     Route: 048
     Dates: start: 201804, end: 201806
  9. DACARBAZINE [Suspect]
     Active Substance: DACARBAZINE
     Indication: Leiomyosarcoma
     Dosage: 300 MG/M2,300MG/M2 IN 1,2,3 DAYS AT 28-DAY INTERVALS
     Route: 065
     Dates: start: 201806, end: 201808
  10. ETOPOSIDE [Suspect]
     Active Substance: ETOPOSIDE
     Dosage: UNK
     Route: 065
     Dates: start: 201809
  11. YONDELIS [Suspect]
     Active Substance: TRABECTEDIN
     Indication: Leiomyosarcoma
     Dosage: 1.3 MG/M2, 12 COURSES WITH TRABECTEDIN ON THE SCHEME OF 1.3MG/M2
     Route: 042
     Dates: start: 20181215, end: 20191004
  12. ERIBULIN [Suspect]
     Active Substance: ERIBULIN
     Indication: Product used for unknown indication
     Dosage: UNK
     Route: 065
     Dates: start: 201911

REACTIONS (12)
  - Death [Fatal]
  - Haematotoxicity [Unknown]
  - Hepatitis C [Unknown]
  - Leukopenia [Unknown]
  - Thrombocytopenia [Unknown]
  - Neutropenia [Unknown]
  - Disease progression [Unknown]
  - Asthenia [Unknown]
  - Transaminases increased [Unknown]
  - Vomiting [Unknown]
  - Nausea [Unknown]
  - Off label use [Unknown]

NARRATIVE: CASE EVENT DATE: 20220501
